FAERS Safety Report 8821141 (Version 1)
Quarter: 2012Q4

REPORT INFORMATION
  Report Type: 
  Country: US (occurrence: US)
  Receive Date: 20121002
  Receipt Date: 20121002
  Transmission Date: 20130627
  Serious: No
  Sender: FDA-Public Use
  Company Number: US-BRISTOL-MYERS SQUIBB COMPANY-16077695

PATIENT
  Sex: Female

DRUGS (6)
  1. BUSPIRONE HCL [Suspect]
     Dosage: Dose increased to 15mg
1Sep11-Unk
  2. PROZAC [Concomitant]
  3. RITALIN [Concomitant]
  4. MINIPRESS [Concomitant]
  5. HYDRAZINE SULFATE [Concomitant]
  6. LASIX [Concomitant]

REACTIONS (3)
  - Drug ineffective [Unknown]
  - Agitation [Recovered/Resolved]
  - Nightmare [Recovered/Resolved]
